FAERS Safety Report 7759622-2 (Version None)
Quarter: 2011Q3

REPORT INFORMATION
  Report Type: 
  Country: None (occurrence: None)
  Receive Date: 20110919
  Receipt Date: 20110914
  Transmission Date: 20111222
  Serious: Yes (Hospitalization)
  Sender: FDA-Public Use
  Company Number: FR-ROCHE-802552

PATIENT
  Sex: Male

DRUGS (11)
  1. ACETAMINOPHEN [Concomitant]
  2. AVODART [Concomitant]
  3. LASIX [Concomitant]
     Dosage: DRUG REPORTED AS LASILIX 500
  4. CIPROFLOXACIN [Suspect]
     Route: 048
     Dates: start: 20110621, end: 20110711
  5. DIAMICRON [Concomitant]
  6. PLAVIX [Concomitant]
  7. ROCEPHIN [Suspect]
     Dosage: FREQUENCY: DAILY
     Route: 030
     Dates: start: 20110621, end: 20110711
  8. GLUCOPHAGE [Concomitant]
     Dosage: DRUG REPORTED AS: GLUCOPHAGE 850
  9. CRESTOR [Concomitant]
     Dosage: DRUG REPORTED AS: CRESTOR 10
  10. GENTAMYCIN SULFATE [Concomitant]
  11. PERMIXON [Concomitant]

REACTIONS (1)
  - FEBRILE NEUTROPENIA [None]
